FAERS Safety Report 13705473 (Version 1)
Quarter: 2017Q2

REPORT INFORMATION
  Report Type: Report from Study
  Country: CA (occurrence: CA)
  Receive Date: 20170630
  Receipt Date: 20170630
  Transmission Date: 20170830
  Serious: Yes (Other)
  Sender: FDA-Public Use
  Company Number: CA-AMGEN-CANSL2017063988

PATIENT
  Age: 81 Year
  Sex: Female

DRUGS (7)
  1. PROLIA [Suspect]
     Active Substance: DENOSUMAB
     Dosage: 60 MG/ML, Q6MO
     Route: 058
     Dates: start: 20161124
  2. VITAMIN D [Concomitant]
     Active Substance: CHOLECALCIFEROL
  3. PROLIA [Suspect]
     Active Substance: DENOSUMAB
     Dosage: 60 MG/ML, Q6MO
     Route: 058
     Dates: start: 20170526
  4. BISOPROLOL [Concomitant]
     Active Substance: BISOPROLOL
  5. PROLIA [Suspect]
     Active Substance: DENOSUMAB
     Indication: OSTEOPOROSIS
     Dosage: 60 MG/ML, Q6MO
     Route: 058
     Dates: start: 20160218
  6. VITAMIN C [Concomitant]
     Active Substance: ASCORBIC ACID
  7. CALCIUM [Concomitant]
     Active Substance: CALCIUM

REACTIONS (4)
  - Toothache [Recovered/Resolved]
  - Tinnitus [Not Recovered/Not Resolved]
  - Dental caries [Unknown]
  - Pelvic prolapse [Unknown]

NARRATIVE: CASE EVENT DATE: 201603
